FAERS Safety Report 4595642-7 (Version None)
Quarter: 2005Q1

REPORT INFORMATION
  Report Type: 
  Country: None (occurrence: None)
  Receive Date: 20050223
  Receipt Date: 20050223
  Transmission Date: 20050727
  Serious: Yes (Hospitalization)
  Sender: FDA-Public Use
  Company Number: None

PATIENT
  Age: 62 Year
  Sex: Male
  Weight: 90.7194 kg

DRUGS (2)
  1. GATIFLOXACIN [Suspect]
     Indication: BLOOD CULTURE POSITIVE
     Dosage: 400 MG IV Q 24 H
     Route: 042
     Dates: start: 20041010, end: 20041018
  2. GATIFLOXACIN [Suspect]
     Indication: PNEUMONIA
     Dosage: 400 MG IV Q 24 H
     Route: 042
     Dates: start: 20041010, end: 20041018

REACTIONS (1)
  - BLOOD GLUCOSE INCREASED [None]
